FAERS Safety Report 9242556 (Version 2)
Quarter: 2013Q2

REPORT INFORMATION
  Report Type: Report from Study
  Country: FI (occurrence: FI)
  Receive Date: 20130419
  Receipt Date: 20130425
  Transmission Date: 20140414
  Serious: Yes (Death)
  Sender: FDA-Public Use
  Company Number: FI-ROCHE-1216075

PATIENT
  Sex: Male

DRUGS (5)
  1. AVASTIN [Suspect]
     Indication: COLON CANCER
     Route: 042
     Dates: start: 20090217, end: 20090415
  2. AVASTIN [Suspect]
     Route: 042
     Dates: start: 20110412, end: 20130311
  3. OXALIPLATIN [Concomitant]
     Indication: COLON CANCER
     Route: 042
  4. FLUOROURACIL [Concomitant]
     Route: 042
  5. IRINOTECAN [Concomitant]
     Route: 042

REACTIONS (2)
  - Disease progression [Fatal]
  - Ascites [Unknown]
